FAERS Safety Report 6993189-1 (Version None)
Quarter: 2010Q3

REPORT INFORMATION
  Report Type: 
  Country: None (occurrence: None)
  Receive Date: 20100917
  Receipt Date: 20100329
  Transmission Date: 20110219
  Serious: Yes (Other)
  Sender: FDA-Public Use
  Company Number: US-ASTRAZENECA-2009UW03141

PATIENT
  Sex: Female

DRUGS (13)
  1. SEROQUEL [Suspect]
     Route: 048
     Dates: start: 20030701
  2. SEROQUEL [Suspect]
     Route: 048
     Dates: start: 20040113
  3. CARDIZEM [Concomitant]
     Route: 048
     Dates: start: 20030701
  4. SINGULAIR [Concomitant]
     Dates: start: 20030701
  5. KLONOPIN [Concomitant]
     Route: 048
     Dates: start: 20030701
  6. EFFEXOR [Concomitant]
     Route: 048
     Dates: start: 20030701
  7. NEURONTIN [Concomitant]
     Route: 048
     Dates: start: 20030701
  8. PREDNISONE [Concomitant]
     Dates: start: 20040109
  9. CEFUROXIME AXETIL [Concomitant]
     Dates: start: 20040113
  10. PROMETHEGAN [Concomitant]
     Dates: start: 20040115
  11. FLUOXETINE HCL [Concomitant]
     Dates: start: 20040121
  12. CLONAZEPAM [Concomitant]
     Dates: start: 20040113
  13. LORATADINE [Concomitant]
     Dates: start: 20040126

REACTIONS (2)
  - DIABETES MELLITUS [None]
  - PANCREATITIS [None]
